FAERS Safety Report 5878621-9 (Version None)
Quarter: 2008Q3

REPORT INFORMATION
  Report Type: 
  Country: None (occurrence: None)
  Receive Date: 20080909
  Receipt Date: 20080905
  Transmission Date: 20090109
  Serious: Yes (Other)
  Sender: FDA-Public Use
  Company Number: ADE2008-0282

PATIENT
  Age: 55 Year
  Sex: Male

DRUGS (2)
  1. FLUOXETINE [Suspect]
     Indication: DEPRESSION
     Dates: start: 19950101
  2. FLUOXETINE [Suspect]
     Indication: DEPRESSION
     Dates: start: 20020101

REACTIONS (6)
  - CARCINOID SYNDROME [None]
  - GENERAL PHYSICAL HEALTH DETERIORATION [None]
  - ILEAL STENOSIS [None]
  - METASTASES TO LIVER [None]
  - METASTASES TO LYMPH NODES [None]
  - WEIGHT DECREASED [None]
